FAERS Safety Report 7132817-7 (Version None)
Quarter: 2010Q4

REPORT INFORMATION
  Report Type: 
  Country: None (occurrence: None)
  Receive Date: 20101202
  Receipt Date: 20101118
  Transmission Date: 20110411
  Serious: No
  Sender: FDA-Public Use
  Company Number: US-PFIZER INC-2010152396

PATIENT
  Sex: Male
  Weight: 91 kg

DRUGS (7)
  1. CHANTIX [Suspect]
     Indication: SMOKING CESSATION THERAPY
     Dosage: 0.5 MG, 1X/DAY
     Route: 048
     Dates: start: 20101103, end: 20101104
  2. CHANTIX [Suspect]
     Dosage: 0.5 MG, 1X/DAY
     Route: 048
     Dates: start: 20101117
  3. ZOLOFT [Concomitant]
     Indication: SCHIZOAFFECTIVE DISORDER BIPOLAR TYPE
     Dosage: 200 MG, 1X/DAY
     Route: 048
  4. RISPERDAL [Concomitant]
     Indication: SCHIZOAFFECTIVE DISORDER BIPOLAR TYPE
     Dosage: UNK
  5. ABILIFY [Concomitant]
     Indication: SCHIZOAFFECTIVE DISORDER BIPOLAR TYPE
     Dosage: 30 MG, 1X/DAY
     Route: 048
  6. KLONOPIN [Concomitant]
     Indication: SCHIZOAFFECTIVE DISORDER BIPOLAR TYPE
     Dosage: 0.5 MG, 3X/DAY
     Route: 048
  7. ELAVIL [Concomitant]
     Indication: SCHIZOAFFECTIVE DISORDER BIPOLAR TYPE
     Dosage: 25 MG, 2X/DAY
     Route: 048

REACTIONS (1)
  - DIZZINESS [None]
